FAERS Safety Report 7962606-2 (Version None)
Quarter: 2011Q4

REPORT INFORMATION
  Report Type: 
  Country: None (occurrence: None)
  Receive Date: 20111207
  Receipt Date: 20111205
  Transmission Date: 20120403
  Serious: Yes (Other)
  Sender: FDA-Public Use
  Company Number: US-JNJFOC-20111006164

PATIENT
  Age: 50 Year
  Sex: Female
  Weight: 113.4 kg

DRUGS (6)
  1. OMEPRAZOLE [Concomitant]
     Indication: GASTRIC DISORDER
     Dosage: ^40^
     Route: 065
  2. NORCO [Concomitant]
     Indication: PAIN
     Dosage: 10/325
     Route: 065
  3. GLIPIZIDE [Concomitant]
     Indication: DIABETES MELLITUS
     Route: 065
  4. HYDROCHLOROTHIAZIDE [Concomitant]
     Indication: HYPERTENSION
     Route: 065
  5. BENGAY COLD THERAPY MENTHOL PAIN RELIEVING GEL [Suspect]
     Indication: MUSCULOSKELETAL PAIN
     Dosage: QUARTER SIZED DOLLOP, ONE TIME
     Route: 061
     Dates: start: 20111003, end: 20111004
  6. LOVASTATIN [Concomitant]
     Indication: BLOOD CHOLESTEROL INCREASED
     Dosage: ^10^
     Route: 065

REACTIONS (3)
  - BURN INFECTION [None]
  - APPLICATION SITE SCAR [None]
  - APPLICATION SITE BURN [None]
